FAERS Safety Report 21197013 (Version 53)
Quarter: 2025Q3

REPORT INFORMATION
  Report Type: Report from Study
  Country: MX (occurrence: MX)
  Receive Date: 20220810
  Receipt Date: 20250922
  Transmission Date: 20251021
  Serious: Yes (Hospitalization, Other)
  Sender: TAKEDA
  Company Number: MX-TAKEDA-2022TUS048860

PATIENT
  Age: 49 Year
  Sex: Female
  Weight: 78 kg

DRUGS (8)
  1. ICATIBANT [Suspect]
     Active Substance: ICATIBANT ACETATE
     Indication: Hereditary angioedema
  2. ICATIBANT [Suspect]
     Active Substance: ICATIBANT ACETATE
  3. ICATIBANT [Suspect]
     Active Substance: ICATIBANT ACETATE
  4. ICATIBANT [Suspect]
     Active Substance: ICATIBANT ACETATE
     Dosage: 30 MILLIGRAM, 3/MONTH
  5. ICATIBANT [Suspect]
     Active Substance: ICATIBANT ACETATE
     Dosage: UNK UNK, MONTHLY
  6. ICATIBANT [Suspect]
     Active Substance: ICATIBANT ACETATE
  7. ICATIBANT [Suspect]
     Active Substance: ICATIBANT ACETATE
  8. ENOXAPARIN [Concomitant]
     Active Substance: ENOXAPARIN

REACTIONS (69)
  - Vertigo [Unknown]
  - COVID-19 [Recovering/Resolving]
  - Respiratory distress [Recovered/Resolved]
  - Nephritis [Unknown]
  - Nodule [Not Recovered/Not Resolved]
  - Constipation [Not Recovered/Not Resolved]
  - Initial insomnia [Recovering/Resolving]
  - Fall [Recovering/Resolving]
  - Limb injury [Recovering/Resolving]
  - Hand fracture [Recovering/Resolving]
  - Blood urine present [Unknown]
  - Conjunctivitis [Not Recovered/Not Resolved]
  - Noninfective gingivitis [Unknown]
  - Arthralgia [Unknown]
  - Asthenia [Unknown]
  - Discouragement [Unknown]
  - Nightmare [Unknown]
  - Insomnia [Unknown]
  - Panic reaction [Unknown]
  - Memory impairment [Unknown]
  - Muscular weakness [Recovering/Resolving]
  - Skin tightness [Recovering/Resolving]
  - Peripheral swelling [Recovering/Resolving]
  - Menopausal symptoms [Recovering/Resolving]
  - Musculoskeletal stiffness [Recovering/Resolving]
  - Anxiety [Unknown]
  - Fear [Unknown]
  - Dizziness [Recovered/Resolved]
  - Nausea [Recovered/Resolved]
  - Cough [Unknown]
  - Abdominal pain upper [Recovered/Resolved]
  - Pain [Recovering/Resolving]
  - Pain in extremity [Recovering/Resolving]
  - Migraine [Recovered/Resolved]
  - Haematuria [Recovered/Resolved]
  - Gastritis [Not Recovered/Not Resolved]
  - Reflux gastritis [Not Recovered/Not Resolved]
  - Dyspepsia [Not Recovered/Not Resolved]
  - Haemorrhoids [Recovered/Resolved]
  - Fatigue [Recovered/Resolved]
  - Vomiting [Recovered/Resolved]
  - Chills [Recovered/Resolved]
  - Lethargy [Recovered/Resolved]
  - Oropharyngeal discomfort [Not Recovered/Not Resolved]
  - Throat irritation [Not Recovered/Not Resolved]
  - Influenza like illness [Unknown]
  - Productive cough [Not Recovered/Not Resolved]
  - Influenza [Recovering/Resolving]
  - Aphonia [Recovering/Resolving]
  - Tachycardia [Not Recovered/Not Resolved]
  - Blood pressure increased [Recovered/Resolved]
  - Inflammation [Recovering/Resolving]
  - Genital tract inflammation [Recovered/Resolved]
  - Limb discomfort [Recovering/Resolving]
  - Drug ineffective [Unknown]
  - Gastroenteritis [Recovered/Resolved]
  - Gastric infection [Not Recovered/Not Resolved]
  - Muscle spasms [Recovered/Resolved]
  - Dysmenorrhoea [Recovered/Resolved]
  - Urine output decreased [Not Recovered/Not Resolved]
  - Contraindicated product administered [Not Recovered/Not Resolved]
  - Product availability issue [Unknown]
  - Pharyngitis [Not Recovered/Not Resolved]
  - Malaise [Recovered/Resolved]
  - Diarrhoea [Recovered/Resolved]
  - Abdominal pain [Recovered/Resolved]
  - Headache [Recovered/Resolved]
  - Infection [Recovered/Resolved]
  - Vulvovaginal swelling [Recovered/Resolved]

NARRATIVE: CASE EVENT DATE: 20220731
